FAERS Safety Report 25914003 (Version 3)
Quarter: 2025Q4

REPORT INFORMATION
  Report Type: Spontaneous
  Country: BR (occurrence: BR)
  Receive Date: 20251013
  Receipt Date: 20251114
  Transmission Date: 20260117
  Serious: Yes (Other)
  Sender: ASTELLAS
  Company Number: BR-ASTELLAS-2025-AER-053980

PATIENT
  Age: 43 Year
  Sex: Female

DRUGS (3)
  1. VESICARE [Suspect]
     Active Substance: SOLIFENACIN SUCCINATE
     Indication: Urinary incontinence
     Route: 065
     Dates: start: 2024
  2. MIRABEGRON [Suspect]
     Active Substance: MIRABEGRON
     Indication: Urinary incontinence
     Route: 065
  3. BOTOX [Concomitant]
     Active Substance: ONABOTULINUMTOXINA
     Indication: Urinary incontinence
     Dosage: EVERY 6-7 MONTHS
     Route: 065

REACTIONS (6)
  - Paraplegia [Unknown]
  - Extradural haematoma [Unknown]
  - Iatrogenic injury [Unknown]
  - Fistula [Unknown]
  - Product packaging issue [Unknown]
  - Off label use [Unknown]
